FAERS Safety Report 7240675-5 (Version None)
Quarter: 2011Q1

REPORT INFORMATION
  Report Type: 
  Country: None (occurrence: None)
  Receive Date: 20110124
  Receipt Date: 20100624
  Transmission Date: 20110831
  Serious: No
  Sender: FDA-Public Use
  Company Number: US-KINGPHARMUSA00001-K201000812

PATIENT
  Sex: Male
  Weight: 18.141 kg

DRUGS (3)
  1. ZYRTEC [Concomitant]
     Indication: SEASONAL ALLERGY
     Dosage: UNK, QAM
  2. HYDROXYZINE [Concomitant]
     Indication: SEASONAL ALLERGY
     Dosage: UNK, QHS
  3. EPIPEN JR. [Suspect]
     Dosage: 0.15 MG, SINGLE
     Dates: start: 20100624, end: 20100624

REACTIONS (1)
  - ACCIDENTAL EXPOSURE [None]
